FAERS Safety Report 24143595 (Version 2)
Quarter: 2024Q3

REPORT INFORMATION
  Report Type: Spontaneous
  Country: CA (occurrence: CA)
  Receive Date: 20240727
  Receipt Date: 20240809
  Transmission Date: 20241016
  Serious: Yes (Other)
  Sender: TEVA
  Company Number: CA-TEVA-VS-3223326

PATIENT
  Age: 35 Year
  Sex: Male

DRUGS (3)
  1. NALTREXONE [Suspect]
     Active Substance: NALTREXONE
     Indication: Alcohol use disorder
     Route: 065
  2. KETAMINE [Suspect]
     Active Substance: KETAMINE
     Indication: Intentional product misuse
     Dosage: 1-2 G/DAY
     Route: 045
  3. GABAPENTIN [Suspect]
     Active Substance: GABAPENTIN
     Indication: Alcohol use disorder
     Dosage: RECEIVED AT BEDTIME
     Route: 065

REACTIONS (3)
  - Gastrointestinal disorder [Unknown]
  - Intentional product misuse [Unknown]
  - Somnolence [Unknown]
